FAERS Safety Report 13925075 (Version 3)
Quarter: 2019Q4

REPORT INFORMATION
  Report Type: Spontaneous
  Country: JP (occurrence: JP)
  Receive Date: 20170831
  Receipt Date: 20191030
  Transmission Date: 20200122
  Serious: Yes (Hospitalization)
  Sender: FDA-Public Use
  Company Number: JP-ACTELION-A-CH2017-157917

PATIENT
  Age: 65 Year
  Sex: Female
  Weight: 51 kg

DRUGS (11)
  1. REVATIO [Suspect]
     Active Substance: SILDENAFIL CITRATE
     Indication: PULMONARY ARTERIAL HYPERTENSION
     Dosage: 20 MG, TID
     Route: 048
     Dates: start: 20170714, end: 20170726
  2. OXYGEN. [Concomitant]
     Active Substance: OXYGEN
  3. OPSUMIT [Suspect]
     Active Substance: MACITENTAN
     Indication: PULMONARY ARTERIAL HYPERTENSION
     Dosage: 10 MG, QD
     Route: 048
     Dates: start: 20170723, end: 20170726
  4. LEVOFLOXACIN HEMIHYDRATE [Suspect]
     Active Substance: LEVOFLOXACIN
     Indication: PNEUMONIA BACTERIAL
     Dosage: 500 MG, QD
     Route: 065
     Dates: start: 20170726, end: 20170821
  5. MAGMITT [Concomitant]
     Active Substance: MAGNESIUM OXIDE
  6. REVATIO [Suspect]
     Active Substance: SILDENAFIL CITRATE
     Dosage: 60 MG, QD
     Route: 048
     Dates: start: 20170920
  7. NEXIUM [Concomitant]
     Active Substance: ESOMEPRAZOLE MAGNESIUM
  8. PICOSULFATE NA [Concomitant]
     Active Substance: SODIUM PICOSULFATE
  9. THYRADIN [Concomitant]
     Active Substance: LEVOTHYROXINE
  10. SOLANAX [Concomitant]
     Active Substance: ALPRAZOLAM
  11. SENNOSIDE [Concomitant]
     Active Substance: SENNOSIDES

REACTIONS (11)
  - Inflammation [Recovering/Resolving]
  - Erythema [Unknown]
  - Drug eruption [Unknown]
  - Eosinophil count increased [Recovering/Resolving]
  - Chest X-ray abnormal [Recovering/Resolving]
  - Cystic lung disease [Recovering/Resolving]
  - Oxygen saturation decreased [Recovering/Resolving]
  - Interstitial lung disease [Recovering/Resolving]
  - Pneumonia bacterial [Recovering/Resolving]
  - Pleural effusion [Recovering/Resolving]
  - Pruritus [Unknown]

NARRATIVE: CASE EVENT DATE: 20170726
